FAERS Safety Report 17315800 (Version 2)
Quarter: 2020Q1

REPORT INFORMATION
  Report Type: Spontaneous
  Country: US (occurrence: US)
  Receive Date: 20200124
  Receipt Date: 20200313
  Transmission Date: 20200409
  Serious: No
  Sender: FDA-Public Use
  Company Number: US-PFIZER INC-2020030929

PATIENT
  Age: 78 Year
  Sex: Female
  Weight: 66.68 kg

DRUGS (2)
  1. NEURONTIN [Suspect]
     Active Substance: GABAPENTIN
     Indication: ANAESTHESIA DOLOROSA
     Dosage: 2700 MG, DAILY
  2. NEURONTIN [Suspect]
     Active Substance: GABAPENTIN
     Dosage: 2700 MG, 1X/DAY

REACTIONS (3)
  - Product use in unapproved indication [Unknown]
  - Feeling abnormal [Recovered/Resolved]
  - Off label use [Unknown]
